FAERS Safety Report 20086062 (Version 2)
Quarter: 2021Q4

REPORT INFORMATION
  Report Type: Spontaneous
  Country: US (occurrence: US)
  Receive Date: 20211118
  Receipt Date: 20211123
  Transmission Date: 20220303
  Serious: No
  Sender: FDA-Public Use
  Company Number: US-PFIZER INC-2021543976

PATIENT
  Age: 50 Year
  Sex: Male
  Weight: 83.007 kg

DRUGS (1)
  1. XELJANZ XR [Suspect]
     Active Substance: TOFACITINIB CITRATE
     Indication: Giant cell arteritis
     Dosage: 11 MG, DAILY
     Route: 048
     Dates: start: 20190701

REACTIONS (3)
  - Off label use [Unknown]
  - Condition aggravated [Unknown]
  - Pain [Unknown]
